FAERS Safety Report 8078738-7 (Version None)
Quarter: 2012Q1

REPORT INFORMATION
  Report Type: 
  Country: None (occurrence: None)
  Receive Date: 20120124
  Receipt Date: 20120110
  Transmission Date: 20120608
  Serious: Yes (Other)
  Sender: FDA-Public Use
  Company Number: KAD201201-000021

PATIENT
  Age: 57 Year
  Sex: Female

DRUGS (3)
  1. INTERFERON ALFACON-1 (INTERFERON ALFACON 1) [Suspect]
     Indication: HEPATITIS C
     Dosage: ONCE A WEEK, INJECTION
  2. RIBAVIRIN [Suspect]
     Indication: HEPATITIS C
     Dosage: TWO TIMES A DAY
  3. TELAPREVIR (TELAPREVIR) [Suspect]
     Indication: HEPATITIS C
     Dosage: TWO TABLETS EVERY EIGHT HOURS

REACTIONS (11)
  - INSOMNIA [None]
  - MENTAL DISORDER [None]
  - FATIGUE [None]
  - WHITE BLOOD CELL COUNT DECREASED [None]
  - WEIGHT DECREASED [None]
  - DEHYDRATION [None]
  - RED BLOOD CELL COUNT DECREASED [None]
  - MOOD SWINGS [None]
  - DECREASED APPETITE [None]
  - NAUSEA [None]
  - HEADACHE [None]
